FAERS Safety Report 7861396-1 (Version None)
Quarter: 2011Q4

REPORT INFORMATION
  Report Type: 
  Country: None (occurrence: None)
  Receive Date: 20111027
  Receipt Date: 20111025
  Transmission Date: 20120403
  Serious: Yes (Other)
  Sender: FDA-Public Use
  Company Number: US-PFIZER INC-2011260073

PATIENT
  Sex: Male
  Weight: 77.098 kg

DRUGS (2)
  1. PHENOBARBITAL TAB [Suspect]
     Indication: CEREBROVASCULAR ARTERIOVENOUS MALFORMATION
     Dosage: UNK
  2. DILANTIN [Suspect]
     Indication: CEREBROVASCULAR ARTERIOVENOUS MALFORMATION
     Dosage: 300 MG, 1X/DAY
     Route: 048
     Dates: start: 19910101

REACTIONS (3)
  - DRUG LEVEL CHANGED [None]
  - FEELING ABNORMAL [None]
  - HEAD DISCOMFORT [None]
